FAERS Safety Report 4644333-2 (Version None)
Quarter: 2005Q2

REPORT INFORMATION
  Report Type: 
  Country: None (occurrence: None)
  Receive Date: 20050331
  Receipt Date: 20041223
  Transmission Date: 20051028
  Serious: No
  Sender: FDA-Public Use
  Company Number: 04P-163-0284985-00

PATIENT
  Age: 62 Year
  Sex: Female
  Weight: 70.3075 kg

DRUGS (8)
  1. HUMIRA [Suspect]
     Indication: RHEUMATOID ARTHRITIS
     Dosage: 40 MG, 1 IN 2 WK, SUBCUTANEOUS
     Route: 058
     Dates: start: 20040701, end: 20041101
  2. LEFLUNOMIDE [Concomitant]
  3. PREDNISONE TAB [Concomitant]
  4. METOPROLOL SUCCINATE [Concomitant]
  5. NORVASC [Concomitant]
  6. DIOVAN [Concomitant]
  7. AVANDIA [Concomitant]
  8. GLYBURIDE [Concomitant]

REACTIONS (4)
  - IRON DEFICIENCY [None]
  - PARAESTHESIA [None]
  - RASH [None]
  - UNEVALUABLE EVENT [None]
